FAERS Safety Report 20714585 (Version 5)
Quarter: 2022Q2

REPORT INFORMATION
  Report Type: Report from Study
  Country: IT (occurrence: IT)
  Receive Date: 20220415
  Receipt Date: 20220603
  Transmission Date: 20220721
  Serious: Yes (Hospitalization, Other)
  Sender: FDA-Public Use
  Company Number: IT-BRISTOL-MYERS SQUIBB COMPANY-2022-016924

PATIENT
  Sex: Male
  Weight: 95 kg

DRUGS (2)
  1. NIVOLUMAB [Suspect]
     Active Substance: NIVOLUMAB
     Indication: Malignant melanoma
     Dosage: 285 MG 3 MG/KG, EVERY 3 WEEKS
     Route: 042
     Dates: start: 20220124, end: 20220328
  2. IPILIMUMAB [Suspect]
     Active Substance: IPILIMUMAB
     Indication: Malignant melanoma
     Route: 042
     Dates: start: 20220124, end: 20220328

REACTIONS (3)
  - Immune-mediated hepatitis [Unknown]
  - Thyroiditis [Unknown]
  - Pancreatic toxicity [Unknown]

NARRATIVE: CASE EVENT DATE: 20220331
